FAERS Safety Report 8021608-0 (Version None)
Quarter: 2012Q1

REPORT INFORMATION
  Report Type: 
  Country: None (occurrence: None)
  Receive Date: 20120104
  Receipt Date: 20120104
  Transmission Date: 20120608
  Serious: Yes (Hospitalization)
  Sender: FDA-Public Use
  Company Number: None

PATIENT
  Sex: Male
  Weight: 92.5 kg

DRUGS (1)
  1. PRADAXA [Suspect]
     Indication: ATRIAL FIBRILLATION
     Dosage: 150MG
     Route: 048
     Dates: start: 20110901, end: 20111221

REACTIONS (7)
  - SYNCOPE [None]
  - DIARRHOEA [None]
  - FALL [None]
  - EXTRADURAL HAEMATOMA [None]
  - ATRIAL THROMBOSIS [None]
  - DIZZINESS [None]
  - FLATULENCE [None]
